FAERS Safety Report 9976167 (Version 1)
Quarter: 2014Q1

REPORT INFORMATION
  Report Type: Report from Study
  Country: US (occurrence: US)
  Receive Date: 20140306
  Receipt Date: 20140306
  Transmission Date: 20141002
  Serious: No
  Sender: FDA-Public Use
  Company Number: US-ABBVIE-13P-163-1164074-00

PATIENT
  Age: 57 Year
  Sex: Male
  Weight: 95.34 kg

DRUGS (5)
  1. HUMIRA [Suspect]
     Indication: CROHN^S DISEASE
     Dates: start: 2008
  2. LORAZEPAM [Concomitant]
     Indication: ANXIETY
  3. ZOLOFT [Concomitant]
     Indication: DEPRESSION
  4. LIALDA [Concomitant]
     Indication: CROHN^S DISEASE
  5. ZOVIRAX [Concomitant]
     Indication: HERPES OPHTHALMIC

REACTIONS (3)
  - Rosacea [Recovering/Resolving]
  - Erythema [Recovering/Resolving]
  - Tooth infection [Recovering/Resolving]
